FAERS Safety Report 5558097-1 (Version None)
Quarter: 2007Q4

REPORT INFORMATION
  Report Type: 
  Country: None (occurrence: None)
  Receive Date: 20071214
  Receipt Date: 20071204
  Transmission Date: 20080405
  Serious: Yes (Other)
  Sender: FDA-Public Use
  Company Number: FR-SANOFI-SYNTHELABO-A01200713984

PATIENT
  Sex: Female

DRUGS (2)
  1. ANASTROZOLE [Concomitant]
     Indication: BREAST CANCER
     Dosage: UNK
  2. ELIGARD [Suspect]
     Indication: BREAST CANCER
     Route: 058
     Dates: start: 20070915, end: 20070915

REACTIONS (6)
  - ARTHRALGIA [None]
  - BREAST CANCER RECURRENT [None]
  - DIZZINESS [None]
  - GAIT DISTURBANCE [None]
  - HOT FLUSH [None]
  - VISUAL DISTURBANCE [None]
